FAERS Safety Report 10930520 (Version 1)
Quarter: 2015Q1

REPORT INFORMATION
  Report Type: Spontaneous
  Country: US (occurrence: US)
  Receive Date: 20150319
  Receipt Date: 20150319
  Transmission Date: 20150721
  Serious: No
  Sender: FDA-Public Use
  Company Number: US-GLAXOSMITHKLINE-US2014GSK053707

PATIENT
  Sex: Female

DRUGS (2)
  1. FLONASE [Suspect]
     Active Substance: FLUTICASONE PROPIONATE
     Indication: ALLERGIC BRONCHITIS
     Dosage: UNK
  2. VITAMIN C [Suspect]
     Active Substance: ASCORBIC ACID
     Indication: ALLERGIC BRONCHITIS
     Dosage: UNK

REACTIONS (3)
  - Cough [Unknown]
  - Myalgia [Unknown]
  - Pain [Unknown]
